FAERS Safety Report 22940257 (Version 6)
Quarter: 2024Q2

REPORT INFORMATION
  Report Type: Spontaneous
  Country: JP (occurrence: JP)
  Receive Date: 20230913
  Receipt Date: 20240503
  Transmission Date: 20240716
  Serious: Yes (Life-Threatening, Hospitalization)
  Sender: FDA-Public Use
  Company Number: JP-JNJFOC-20230925791

PATIENT
  Age: 6 Decade
  Sex: Male

DRUGS (14)
  1. REMICADE [Suspect]
     Active Substance: INFLIXIMAB
     Indication: Psoriasis
     Dosage: UNK
     Route: 041
  2. REMICADE [Suspect]
     Active Substance: INFLIXIMAB
     Indication: Psoriasis
     Dosage: UNK
     Route: 041
  3. REMICADE [Suspect]
     Active Substance: INFLIXIMAB
     Dosage: UNK
     Route: 041
     Dates: start: 20141222
  4. REMICADE [Suspect]
     Active Substance: INFLIXIMAB
     Dosage: UNK
     Route: 041
     Dates: start: 20191001, end: 20191001
  5. INFLIXIMAB [Concomitant]
     Active Substance: INFLIXIMAB
     Dosage: UNK
     Route: 065
  6. INFLIXIMAB [Concomitant]
     Active Substance: INFLIXIMAB
     Dosage: UNK
     Route: 065
     Dates: start: 20191210, end: 20220426
  7. BETAMETHASONE DIPROPIONATE [Concomitant]
     Active Substance: BETAMETHASONE DIPROPIONATE
     Indication: Psoriasis
     Dosage: APPROPRIATE
     Dates: start: 20151124, end: 20160517
  8. LOCOID [Concomitant]
     Active Substance: HYDROCORTISONE BUTYRATE
     Indication: Psoriasis
     Dosage: APPROPRIATE
     Dates: start: 20151124
  9. RINDERON DP [Concomitant]
     Dosage: APPROPRIATE
     Dates: start: 20160517, end: 20180529
  10. PROTOPIC [Concomitant]
     Active Substance: TACROLIMUS
     Dosage: APPROPRIATE
     Dates: start: 20161227
  11. BETAMETHASONE DIPROPIONATE [Concomitant]
     Active Substance: BETAMETHASONE DIPROPIONATE
     Dosage: APPROPRIATE
     Route: 061
     Dates: start: 20171128, end: 20180529
  12. OTEZLA [Concomitant]
     Active Substance: APREMILAST
     Dosage: 30 MILLIGRAM, BID
     Route: 048
     Dates: start: 20180327
  13. CYCLOSERINE [Concomitant]
     Active Substance: CYCLOSERINE
     Dosage: APPROPRIATE
     Dates: start: 20180529
  14. CLOBETASOL [Concomitant]
     Active Substance: CLOBETASOL
     Dosage: APPROPRIATE
     Dates: start: 20180529

REACTIONS (2)
  - Colon cancer [Recovering/Resolving]
  - Hepatic neoplasm [Recovering/Resolving]

NARRATIVE: CASE EVENT DATE: 20220603
